FAERS Safety Report 18955694 (Version 3)
Quarter: 2021Q4

REPORT INFORMATION
  Report Type: Spontaneous
  Country: US (occurrence: US)
  Receive Date: 20210301
  Receipt Date: 20211216
  Transmission Date: 20220304
  Serious: Yes (Hospitalization)
  Sender: FDA-Public Use
  Company Number: US-PFIZER INC-2021137967

PATIENT
  Age: 57 Year
  Sex: Female
  Weight: 62.132 kg

DRUGS (2)
  1. VENLAFAXINE HCL [Suspect]
     Active Substance: VENLAFAXINE HYDROCHLORIDE
     Indication: Depression
     Dosage: UNK, 1X/DAY (1 PO (ORAL)Q (ONCE A DAY))
     Route: 048
  2. VENLAFAXINE HCL [Suspect]
     Active Substance: VENLAFAXINE HYDROCHLORIDE
     Indication: Post-traumatic stress disorder
     Dosage: UNK, 1X/DAY(150 ONCE A DAY)
     Dates: start: 20210102

REACTIONS (2)
  - Drug ineffective [Unknown]
  - Feeling abnormal [Unknown]
